FAERS Safety Report 12059530 (Version 1)
Quarter: 2016Q1

REPORT INFORMATION
  Report Type: Spontaneous
  Country: TR (occurrence: TR)
  Receive Date: 20160210
  Receipt Date: 20160210
  Transmission Date: 20160526
  Serious: Yes (Hospitalization, Other)
  Sender: FDA-Public Use
  Company Number: TR-MYLANLABS-2016M1004742

PATIENT

DRUGS (1)
  1. LIDOCAINE. [Suspect]
     Active Substance: LIDOCAINE
     Indication: LOCAL ANAESTHESIA
     Dosage: 100MG
     Route: 065

REACTIONS (3)
  - Loss of consciousness [Recovered/Resolved]
  - Rash erythematous [Recovered/Resolved]
  - Generalised tonic-clonic seizure [Recovered/Resolved]
